FAERS Safety Report 14099599 (Version 8)
Quarter: 2018Q4

REPORT INFORMATION
  Report Type: Report from Study
  Country: US (occurrence: US)
  Receive Date: 20171017
  Receipt Date: 20181109
  Transmission Date: 20190204
  Serious: No
  Sender: FDA-Public Use
  Company Number: US-BAYER-2017-192283

PATIENT
  Age: 76 Year
  Sex: Male
  Weight: 89.8 kg

DRUGS (20)
  1. BISACODYL. [Concomitant]
     Active Substance: BISACODYL
     Dosage: 5 MG, QD
     Route: 048
  2. TAMSULOSIN [Concomitant]
     Active Substance: TAMSULOSIN
     Dosage: 0.4 MG, QD
     Route: 048
  3. INSULIN LISPRO [Concomitant]
     Active Substance: INSULIN LISPRO
     Dosage: 15 U, TID
     Route: 058
  4. CLOPIDOGREL [Suspect]
     Active Substance: CLOPIDOGREL BISULFATE
     Indication: THROMBOSIS PROPHYLAXIS
     Dosage: 75 MG, QD
     Dates: start: 20170920, end: 20171117
  5. ATORVASTATIN [Concomitant]
     Active Substance: ATORVASTATIN
     Dosage: 40 MG, QD
     Route: 048
  6. IBUPROFEN. [Concomitant]
     Active Substance: IBUPROFEN
     Dosage: 200 MG, QID
     Route: 048
  7. ASPIRIN. [Concomitant]
     Active Substance: ASPIRIN
     Dosage: 81 MG, QD
     Route: 048
     Dates: end: 20170919
  8. CLOPIDOGREL [Suspect]
     Active Substance: CLOPIDOGREL BISULFATE
     Indication: AORTIC VALVE REPLACEMENT
  9. QUINAPRIL. [Concomitant]
     Active Substance: QUINAPRIL
     Dosage: 10 MG, BID
     Route: 048
  10. DOCUSATE [Concomitant]
     Active Substance: DOCUSATE
     Dosage: 100 MG, BID
     Route: 048
  11. TORSEMIDE. [Concomitant]
     Active Substance: TORSEMIDE
     Dosage: 5 MG, QD
     Route: 048
  12. ACETYLSALICYLIC ACID({=100 MG) [Suspect]
     Active Substance: ASPIRIN
     Indication: THROMBOSIS PROPHYLAXIS
     Dosage: 81 MG, QD
     Route: 048
     Dates: start: 20170920, end: 20180911
  13. CARVEDILOL. [Concomitant]
     Active Substance: CARVEDILOL
     Dosage: 3 MG, QD
     Route: 048
  14. POLYETHYLENE GLYCOL [Concomitant]
     Active Substance: POLYETHYLENE GLYCOLS
     Dosage: 1 DF, QD
     Route: 048
  15. SENNA ALEXANDRIA EXTRACT W/DOCUSATE SODIUM [Concomitant]
     Dosage: 1 DF, QD
     Route: 048
  16. ACETYLSALICYLIC ACID({=100 MG) [Suspect]
     Active Substance: ASPIRIN
     Indication: AORTIC VALVE REPLACEMENT
  17. OXYBUTYNIN. [Concomitant]
     Active Substance: OXYBUTYNIN CHLORIDE
     Dosage: 10 MG, QD
     Route: 048
  18. DUTASTERIDE W/TAMSULOSIN HYDROCHLORIDE [Concomitant]
     Active Substance: DUTASTERIDE\TAMSULOSIN HYDROCHLORIDE
     Dosage: 1 DF, QD
     Route: 048
  19. INSULIN GLARGINE [Concomitant]
     Active Substance: INSULIN GLARGINE
     Dosage: 18 U, QD
     Route: 058
  20. OXYMETAZOLINE [Concomitant]
     Active Substance: OXYMETAZOLINE
     Dosage: UNK UNK, PRN
     Route: 045

REACTIONS (1)
  - Dysuria [Recovered/Resolved]

NARRATIVE: CASE EVENT DATE: 20170930
